FAERS Safety Report 25919280 (Version 1)
Quarter: 2025Q4

REPORT INFORMATION
  Report Type: Spontaneous
  Country: US (occurrence: None)
  Receive Date: 20251013
  Receipt Date: 20251013
  Transmission Date: 20260117
  Serious: Yes (Hospitalization)
  Sender: FDA-CTU
  Company Number: None

PATIENT
  Age: 66 Year
  Sex: Female

DRUGS (3)
  1. RINVOQ [Suspect]
     Active Substance: UPADACITINIB
     Indication: Crohn^s disease
     Dosage: FREQUENCY : DAILY;?
     Route: 048
     Dates: start: 20250908
  2. RINVOQ [Suspect]
     Active Substance: UPADACITINIB
     Indication: Intestinal obstruction
  3. ISKYRIZI [Concomitant]

REACTIONS (2)
  - Impaired quality of life [None]
  - Intestinal resection [None]

NARRATIVE: CASE EVENT DATE: 20250925
